FAERS Safety Report 22884071 (Version 2)
Quarter: 2023Q4

REPORT INFORMATION
  Report Type: Report from Study
  Country: BR (occurrence: None)
  Receive Date: 20230830
  Receipt Date: 20231003
  Transmission Date: 20240110
  Serious: Yes (Hospitalization)
  Sender: FDA-Public Use
  Company Number: BR-Eisai Medical Research-EC-2023-147587

PATIENT
  Age: 45 Year
  Sex: Male
  Weight: 56.2 kg

DRUGS (4)
  1. LENVATINIB [Suspect]
     Active Substance: LENVATINIB
     Indication: Clear cell renal cell carcinoma
     Dosage: STARTING DOSE AT 20 MG (FLUCTUATED DOSAGE)
     Route: 048
     Dates: start: 20220419, end: 20230813
  2. QUAVONLIMAB [Suspect]
     Active Substance: QUAVONLIMAB
     Indication: Clear cell renal cell carcinoma
     Dosage: QUAVONLIMAB 25 MG (+) PEMBROLIZUMAB 400 MG (MK-1308A)
     Route: 042
     Dates: start: 20220419, end: 20230613
  3. DIPYRONE [Concomitant]
     Active Substance: DIPYRONE
     Dates: start: 20220503
  4. PEMBROLIZUMAB [Suspect]
     Active Substance: PEMBROLIZUMAB

REACTIONS (2)
  - Nausea [Recovering/Resolving]
  - Vomiting [Recovering/Resolving]

NARRATIVE: CASE EVENT DATE: 20230822
